FAERS Safety Report 18479593 (Version 1)
Quarter: 2020Q4

REPORT INFORMATION
  Report Type: Spontaneous
  Country: JP (occurrence: JP)
  Receive Date: 20201109
  Receipt Date: 20201109
  Transmission Date: 20210114
  Serious: Yes (Hospitalization)
  Sender: FDA-Public Use
  Company Number: JP-MYLANLABS-2020M1091478

PATIENT
  Age: 74 Year
  Sex: Female

DRUGS (7)
  1. CLARITHROMYCIN. [Suspect]
     Active Substance: CLARITHROMYCIN
     Indication: HELICOBACTER INFECTION
     Dosage: 200 MILLIGRAM, BID
     Route: 048
  2. BENIDIPINE [Interacting]
     Active Substance: BENIDIPINE
     Indication: HYPERTENSION
     Route: 048
  3. CARVEDILOL. [Interacting]
     Active Substance: CARVEDILOL
     Indication: HYPERTENSION
     Route: 048
  4. METHOTREXATE. [Concomitant]
     Active Substance: METHOTREXATE
     Indication: RHEUMATOID ARTHRITIS
     Route: 048
  5. VONOPRAZAN [Concomitant]
     Active Substance: VONOPRAZAN
     Indication: HELICOBACTER INFECTION
     Dosage: 20 MILLIGRAM, BID
     Route: 065
  6. AMOXICILLIN. [Concomitant]
     Active Substance: AMOXICILLIN
     Indication: HELICOBACTER INFECTION
     Dosage: 750 MILLIGRAM, BID
     Route: 065
  7. LOSARTAN. [Concomitant]
     Active Substance: LOSARTAN
     Indication: HYPERTENSION
     Route: 048

REACTIONS (3)
  - Drug interaction [Unknown]
  - Depressed level of consciousness [Recovering/Resolving]
  - Hypotension [Recovering/Resolving]
